FAERS Safety Report 15333499 (Version 3)
Quarter: 2018Q3

REPORT INFORMATION
  Report Type: Spontaneous
  Country: US (occurrence: US)
  Receive Date: 20180830
  Receipt Date: 20180929
  Transmission Date: 20181010
  Serious: Yes (Other)
  Sender: FDA-Public Use
  Company Number: US-JNJFOC-20180818918

PATIENT
  Age: 82 Year
  Sex: Male

DRUGS (6)
  1. METFORMIN [Concomitant]
     Active Substance: METFORMIN HYDROCHLORIDE
     Indication: TYPE 2 DIABETES MELLITUS
     Route: 065
  2. PREDNISONE. [Concomitant]
     Active Substance: PREDNISONE
     Route: 065
  3. LEVOTHYROXIN [Concomitant]
     Active Substance: LEVOTHYROXINE
     Indication: THYROID DISORDER
     Route: 065
  4. ZYTIGA [Suspect]
     Active Substance: ABIRATERONE ACETATE
     Indication: PRODUCT USED FOR UNKNOWN INDICATION
     Route: 048
     Dates: start: 20160101, end: 201806
  5. GLYBURIDE. [Concomitant]
     Active Substance: GLYBURIDE
     Indication: TYPE 2 DIABETES MELLITUS
     Route: 065
  6. XARELTO [Concomitant]
     Active Substance: RIVAROXABAN
     Indication: THROMBOSIS
     Route: 065

REACTIONS (2)
  - Drug effect decreased [Unknown]
  - Prostatic specific antigen increased [Not Recovered/Not Resolved]

NARRATIVE: CASE EVENT DATE: 201806
